FAERS Safety Report 12617898 (Version 5)
Quarter: 2016Q4

REPORT INFORMATION
  Report Type: Spontaneous
  Country: US (occurrence: US)
  Receive Date: 20160803
  Receipt Date: 20161007
  Transmission Date: 20170207
  Serious: Yes (Other)
  Sender: FDA-Public Use
  Company Number: US-PFIZER INC-2016370800

PATIENT
  Age: 51 Year
  Sex: Female
  Weight: 108.9 kg

DRUGS (18)
  1. PRILOSEC [Concomitant]
     Active Substance: OMEPRAZOLE MAGNESIUM
     Indication: GASTROOESOPHAGEAL REFLUX DISEASE
  2. PRILOSEC [Concomitant]
     Active Substance: OMEPRAZOLE MAGNESIUM
     Indication: GASTROOESOPHAGEAL REFLUX DISEASE
  3. CYMBALTA [Concomitant]
     Active Substance: DULOXETINE HYDROCHLORIDE
     Indication: DEPRESSION
  4. LYRICA [Suspect]
     Active Substance: PREGABALIN
     Indication: FIBROMYALGIA
     Dosage: UNK
     Route: 048
     Dates: start: 20160801
  5. ADVIL [Concomitant]
     Active Substance: IBUPROFEN
     Dosage: 200 MG, 4X/DAY (TAKE 1 TABLET EVERY 6 HOURS)
     Route: 048
  6. LYRICA [Suspect]
     Active Substance: PREGABALIN
     Indication: NEURALGIA
     Dosage: 50 MG, 2X/DAY
     Route: 048
  7. LYRICA [Suspect]
     Active Substance: PREGABALIN
     Indication: RADICULOPATHY
     Dosage: 100 MG, 2X/DAY
     Route: 048
  8. CYMBALTA [Concomitant]
     Active Substance: DULOXETINE HYDROCHLORIDE
     Indication: BACK PAIN
     Dosage: 60 MG, 1X/DAY
     Route: 048
     Dates: start: 201508
  9. MOTRIN [Concomitant]
     Active Substance: IBUPROFEN
     Dosage: 200 MG, 4X/DAY  (TAKE 1 TABLET EVERY 6 HOURS)
     Route: 048
  10. ROBAXIN [Concomitant]
     Active Substance: METHOCARBAMOL
     Dosage: 500 MG, 3X/DAY
     Dates: start: 201606
  11. OCEAN NASAL [Concomitant]
     Dosage: 0.65 %, (1 SPRAY IN THE NOSTRIL(S) 3 TIMES DAILY)
     Route: 045
  12. VALTREX [Concomitant]
     Active Substance: VALACYCLOVIR HYDROCHLORIDE
     Indication: HERPES SIMPLEX
     Dosage: 500 MG, 1X/DAY
     Route: 048
     Dates: start: 201606
  13. PRILOSEC [Concomitant]
     Active Substance: OMEPRAZOLE MAGNESIUM
     Indication: ULCER
     Dosage: 20 MG, 3X/DAY
     Dates: start: 20160623
  14. FLONASE [Concomitant]
     Active Substance: FLUTICASONE PROPIONATE
     Indication: HYPERSENSITIVITY
     Dosage: UNK UNK, 1X/DAY, (ONE SIDE IN EACH NOSTRILS EACH DAY)
     Dates: start: 201605
  15. LYRICA [Suspect]
     Active Substance: PREGABALIN
     Dosage: 150 MG, 2X/DAY
  16. PROVENTIL [Concomitant]
     Active Substance: ALBUTEROL
     Indication: DYSPNOEA
     Dosage: 0.083 %, INHALE 3 ML VIA A NEBULIZER EVERY 6 HOURS IF NEEDED
     Route: 055
  17. ROBAXIN [Concomitant]
     Active Substance: METHOCARBAMOL
     Indication: BACK PAIN
     Dosage: 500 MG, 1X/DAY (TAKE ONE TABLET AT BEDTIME)
  18. LIDOCAINE. [Concomitant]
     Active Substance: LIDOCAINE
     Dosage: 5 %, AS NEEDED (TOPICALLY TO AFFECTED 50 G AREA(S) 2 TIMES DAILY IF NEEDED FOR OTHER)
     Route: 061

REACTIONS (18)
  - Impetigo [Unknown]
  - Pharyngitis streptococcal [Unknown]
  - Impaired work ability [Unknown]
  - Activities of daily living impaired [Unknown]
  - Joint swelling [Recovered/Resolved]
  - Staphylococcal infection [Unknown]
  - Paraesthesia [Unknown]
  - Sleep disorder [Unknown]
  - Pyrexia [Unknown]
  - Lymphadenopathy [Unknown]
  - Spinal pain [Unknown]
  - Weight decreased [Recovered/Resolved]
  - Pain [Unknown]
  - Chills [Unknown]
  - Peripheral swelling [Recovered/Resolved]
  - Muscular weakness [Unknown]
  - Oropharyngeal pain [Unknown]
  - Infected bite [Unknown]

NARRATIVE: CASE EVENT DATE: 201504
